FAERS Safety Report 7897132-2 (Version None)
Quarter: 2011Q4

REPORT INFORMATION
  Report Type: 
  Country: None (occurrence: None)
  Receive Date: 20111107
  Receipt Date: 20111024
  Transmission Date: 20120403
  Serious: Yes (Hospitalization, Other)
  Sender: FDA-Public Use
  Company Number: CA-ELI_LILLY_AND_COMPANY-CA201110006617

PATIENT
  Age: 82 Year
  Sex: Female

DRUGS (9)
  1. ASPIRIN [Concomitant]
     Dosage: 81 MG, UNK
  2. MINIPRESS [Concomitant]
  3. CALCIUM [Concomitant]
  4. MICARDIS [Concomitant]
  5. HYDROCHLOROTHIAZIDE [Concomitant]
  6. METOPROLOL TARTRATE [Concomitant]
  7. FORTEO [Suspect]
     Indication: OSTEOPOROSIS
     Dosage: 20 UG, QD
     Route: 058
     Dates: start: 20110525
  8. VITAMIN D [Concomitant]
  9. NORVASC [Concomitant]

REACTIONS (4)
  - DEVICE ISSUE [None]
  - HIP ARTHROPLASTY [None]
  - CYSTITIS [None]
  - FALL [None]
